FAERS Safety Report 5541604-2 (Version None)
Quarter: 2007Q4

REPORT INFORMATION
  Report Type: 
  Country: None (occurrence: None)
  Receive Date: 20071210
  Receipt Date: 20071130
  Transmission Date: 20080405
  Serious: Yes (Other)
  Sender: FDA-Public Use
  Company Number: US-JNJFOC-20071110972

PATIENT
  Age: 71 Year
  Sex: Female

DRUGS (4)
  1. REMICADE [Suspect]
     Indication: RHEUMATOID ARTHRITIS
     Route: 042
  2. METHOTREXATE [Concomitant]
     Indication: RHEUMATOID ARTHRITIS
     Route: 065
  3. FOSAMAX [Concomitant]
     Route: 065
  4. EVISTA [Concomitant]
     Route: 065

REACTIONS (3)
  - HEADACHE [None]
  - NAUSEA [None]
  - VAGINAL HAEMORRHAGE [None]
